FAERS Safety Report 26180830 (Version 1)
Quarter: 2025Q4

REPORT INFORMATION
  Report Type: Spontaneous
  Country: EU (occurrence: EU)
  Receive Date: 20251221
  Receipt Date: 20251221
  Transmission Date: 20260118
  Serious: Yes (Death)
  Sender: BIOGEN
  Company Number: EU-BIOGEN-2096056

PATIENT
  Age: 60 Year
  Sex: Female
  Weight: 82 kg

DRUGS (6)
  1. AVONEX [Suspect]
     Active Substance: INTERFERON BETA-1A
     Indication: Relapsing-remitting multiple sclerosis
     Dosage: DOSING FREQUENCY NOT PROVIDED
  2. AVONEX [Suspect]
     Active Substance: INTERFERON BETA-1A
  3. AVONEX [Suspect]
     Active Substance: INTERFERON BETA-1A
  4. AVONEX [Suspect]
     Active Substance: INTERFERON BETA-1A
  5. AVONEX [Suspect]
     Active Substance: INTERFERON BETA-1A
  6. Novalgin [Concomitant]
     Indication: Product used for unknown indication

REACTIONS (1)
  - Lung neoplasm malignant [Fatal]
